FAERS Safety Report 23756612 (Version 1)
Quarter: 2024Q2

REPORT INFORMATION
  Report Type: Spontaneous
  Country: JP (occurrence: None)
  Receive Date: 20240418
  Receipt Date: 20240418
  Transmission Date: 20240716
  Serious: Yes (Hospitalization)
  Sender: FDA-Public Use
  Company Number: JP-Orion Corporation ORION PHARMA-ENTC2024-0040

PATIENT
  Age: 78 Year
  Sex: Male

DRUGS (1)
  1. STALEVO [Suspect]
     Active Substance: CARBIDOPA\ENTACAPONE\LEVODOPA
     Indication: Product used for unknown indication
     Dosage: L50 (1DF: LEVODOPA 50MG, CARBIDOPA 5MG, ENTACAPONE 100MG,), AND L100 (1DF: LEVODOPA 100MG,CARBIDOPA

REACTIONS (1)
  - Dysphagia [Unknown]
